FAERS Safety Report 4874027-X (Version None)
Quarter: 2005Q4

REPORT INFORMATION
  Report Type: 
  Country: None (occurrence: None)
  Receive Date: 20051201
  Receipt Date: 20050805
  Transmission Date: 20060501
  Serious: No
  Sender: FDA-Public Use
  Company Number: 2005PV000940

PATIENT
  Age: 51 Year
  Sex: Male
  Weight: 104.3273 kg

DRUGS (10)
  1. BYETTA [Suspect]
     Indication: DIABETES MELLITUS NON-INSULIN-DEPENDENT
     Dosage: SEE IMAGE
     Route: 058
     Dates: start: 20050723, end: 20050801
  2. BYETTA [Suspect]
     Indication: DIABETES MELLITUS NON-INSULIN-DEPENDENT
     Dosage: SEE IMAGE
     Route: 058
     Dates: start: 20050801
  3. FLOMAX [Concomitant]
  4. LORATADINE [Concomitant]
  5. ANTARA CAP [Concomitant]
  6. NEBUMETONE [Concomitant]
  7. ASPIRIN [Concomitant]
  8. ACTOS [Concomitant]
  9. LIPITOR [Concomitant]
  10. DIOVAN [Concomitant]

REACTIONS (5)
  - INJECTION SITE VESICLES [None]
  - MUSCULOSKELETAL CHEST PAIN [None]
  - NAUSEA [None]
  - VOMITING [None]
  - WEIGHT DECREASED [None]
